FAERS Safety Report 14277193 (Version 3)
Quarter: 2017Q4

REPORT INFORMATION
  Report Type: Spontaneous
  Country: RU (occurrence: RU)
  Receive Date: 20171212
  Receipt Date: 20171226
  Transmission Date: 20180321
  Serious: Yes (Other)
  Sender: FDA-Public Use
  Company Number: RU-ASTRAZENECA-2017SF26158

PATIENT
  Age: 26051 Day
  Sex: Male

DRUGS (1)
  1. BRILINTA [Suspect]
     Active Substance: TICAGRELOR
     Indication: ANGINA UNSTABLE
     Route: 048

REACTIONS (12)
  - Mitral valve incompetence [Unknown]
  - Cardiac valve disease [Unknown]
  - Arteriosclerosis coronary artery [Unknown]
  - Aortic disorder [Unknown]
  - Coronary artery stenosis [Unknown]
  - Aortic valve incompetence [Unknown]
  - Ventricular hypertrophy [Unknown]
  - Left ventricular dysfunction [Unknown]
  - Vascular stent thrombosis [Recovered/Resolved]
  - Vascular stent restenosis [Unknown]
  - Cardiac failure congestive [Unknown]
  - Tricuspid valve incompetence [Unknown]

NARRATIVE: CASE EVENT DATE: 20171129
